FAERS Safety Report 5794601-6 (Version None)
Quarter: 2008Q2

REPORT INFORMATION
  Report Type: 
  Country: None (occurrence: None)
  Receive Date: 20080625
  Receipt Date: 20080613
  Transmission Date: 20081010
  Serious: Yes (Death, Life-Threatening)
  Sender: FDA-Public Use
  Company Number: 000682

PATIENT
  Age: 4 Month
  Sex: Male
  Weight: 4 kg

DRUGS (13)
  1. BUSULFEX [Suspect]
     Indication: STEM CELL TRANSPLANT
     Dosage: 1 MG/KG, QID INTRAVENOUS
     Route: 042
     Dates: start: 20071019, end: 20071023
  2. TACROLIMUS [Suspect]
     Dates: start: 20071030, end: 20071113
  3. FLUDARABINE PHOSPHATE [Suspect]
  4. MELPHALAN (MELPHALAN) [Suspect]
     Dates: start: 20071002
  5. MELPHALAN (MELPHALAN) [Suspect]
     Dates: start: 20071027
  6. FUROSEMIDE [Suspect]
     Dates: start: 20071019
  7. FUROSEMIDE [Suspect]
     Dates: start: 20071101
  8. ARBEKACIN SULFATE (ARBEKACIN SULFATE) [Suspect]
  9. POLYMYXIN BU SULFATE (POLYMYXIN B SULFATE) [Concomitant]
  10. VANCOMYCIN HYDROCHLORIDE [Concomitant]
  11. TAUROURSODESOXYCHOLIC ACID (TAUROURSODESOXYCHOLIC ACID) [Concomitant]
  12. FLUCONAZOLE [Concomitant]
  13. ACYCLOVIR [Concomitant]

REACTIONS (12)
  - CARDIAC ARREST [None]
  - CARDIAC FAILURE [None]
  - GRAFT VERSUS HOST DISEASE [None]
  - HYPOGLYCAEMIA [None]
  - HYPOTENSION [None]
  - PULMONARY OEDEMA [None]
  - RENAL FAILURE ACUTE [None]
  - RESPIRATORY FAILURE [None]
  - SEPTIC SHOCK [None]
  - STAPHYLOCOCCAL SEPSIS [None]
  - VENOOCCLUSIVE LIVER DISEASE [None]
  - WEIGHT INCREASED [None]
